FAERS Safety Report 9481058 (Version 1)
Quarter: 2013Q3

REPORT INFORMATION
  Report Type: Spontaneous
  Country: US (occurrence: US)
  Receive Date: 20130828
  Receipt Date: 20130828
  Transmission Date: 20140515
  Serious: Yes (Hospitalization)
  Sender: FDA-Public Use
  Company Number: US-AMGEN-KDL149873

PATIENT
  Age: 78 Year
  Sex: Male

DRUGS (1)
  1. ENBREL [Suspect]
     Indication: PSORIASIS
     Dosage: UNK UNK, UNK
     Route: 065
     Dates: start: 20040801, end: 20050103

REACTIONS (5)
  - Implantable defibrillator insertion [Recovered/Resolved]
  - Cardiac pacemaker insertion [Recovered/Resolved]
  - Pneumonia [Recovered/Resolved]
  - Psoriasis [Unknown]
  - Condition aggravated [Unknown]
